FAERS Safety Report 8304316-8 (Version None)
Quarter: 2012Q2

REPORT INFORMATION
  Report Type: 
  Country: None (occurrence: None)
  Receive Date: 20120423
  Receipt Date: 20120423
  Transmission Date: 20120825
  Serious: Yes (Other)
  Sender: FDA-Public Use
  Company Number: None

PATIENT
  Age: 40 Year
  Sex: Male
  Weight: 91.172 kg

DRUGS (2)
  1. PREDNISONE [Suspect]
     Indication: SCIATICA
     Dosage: 40MG
     Route: 048
     Dates: start: 20120413, end: 20120417
  2. PREDNISONE [Suspect]
     Indication: PAIN IN EXTREMITY
     Dosage: 40MG
     Route: 048
     Dates: start: 20120413, end: 20120417

REACTIONS (3)
  - DEPRESSION [None]
  - DYSPNOEA [None]
  - NERVOUSNESS [None]
